FAERS Safety Report 6768429 (Version 2)
Quarter: 2015Q2

REPORT INFORMATION
  Report Type: Spontaneous
  Country: GB (occurrence: GB)
  Receive Date: 20080924
  Receipt Date: 20150415
  Transmission Date: 20150821
  Serious: Yes (Hospitalization, Other)
  Sender: FDA-Public Use
  Company Number: PHHY2008GB21574

PATIENT
  Sex: Male

DRUGS (1)
  1. CLOZARIL [Suspect]
     Active Substance: CLOZAPINE
     Indication: SCHIZOPHRENIA
     Dosage: UNK
     Route: 048
     Dates: start: 20010701

REACTIONS (5)
  - Alanine aminotransferase increased [Unknown]
  - Sialoadenitis [Unknown]
  - Sialoadenitis [Recovered/Resolved]
  - Salivary hypersecretion [Unknown]
  - Gamma-glutamyltransferase increased [Unknown]
